FAERS Safety Report 23026922 (Version 1)
Quarter: 2023Q4

REPORT INFORMATION
  Report Type: Report from Study
  Country: US (occurrence: US)
  Receive Date: 20231004
  Receipt Date: 20231004
  Transmission Date: 20240109
  Serious: Yes (Other)
  Sender: FDA-Public Use
  Company Number: US-GILEAD-2023-0645703

PATIENT
  Age: 61 Year
  Sex: Male
  Weight: 107.5 kg

DRUGS (15)
  1. AMBRISENTAN [Suspect]
     Active Substance: AMBRISENTAN
     Indication: Pulmonary arterial hypertension
     Dosage: UNK
     Route: 065
     Dates: end: 2023
  2. REMODULIN [Suspect]
     Active Substance: TREPROSTINIL
     Indication: Pulmonary arterial hypertension
     Dosage: UNK
     Route: 042
     Dates: start: 20230504
  3. REMODULIN [Suspect]
     Active Substance: TREPROSTINIL
     Dosage: 0.019 UG/KG (CONCENTRATION: 1.0 MG/ML)
     Route: 042
     Dates: start: 2023
  4. REMODULIN [Suspect]
     Active Substance: TREPROSTINIL
     Dosage: 0.020 UG/KG (CONCENTRATION: 2.5 MG/ML)
     Route: 042
     Dates: start: 2023
  5. REMODULIN [Suspect]
     Active Substance: TREPROSTINIL
     Dosage: UNK
     Route: 042
     Dates: start: 20230504
  6. TYLENOL [Concomitant]
     Active Substance: ACETAMINOPHEN
  7. SILDENAFIL [Concomitant]
     Active Substance: SILDENAFIL
  8. ACETAMINOPHEN [Concomitant]
     Active Substance: ACETAMINOPHEN
  9. ALBUTEROL SULFATE [Concomitant]
     Active Substance: ALBUTEROL SULFATE
  10. SODIUM CHLORIDE [Concomitant]
     Active Substance: SODIUM CHLORIDE
  11. FUROSEMIDE [Concomitant]
     Active Substance: FUROSEMIDE
  12. SPIRONOLACTONE [Concomitant]
     Active Substance: SPIRONOLACTONE
  13. LIDOCAINE [Concomitant]
     Active Substance: LIDOCAINE
  14. COREG [Concomitant]
     Active Substance: CARVEDILOL
  15. ELIQUIS [Concomitant]
     Active Substance: APIXABAN

REACTIONS (2)
  - Liver disorder [Unknown]
  - Migraine [Unknown]

NARRATIVE: CASE EVENT DATE: 20230101
